FAERS Safety Report 25886942 (Version 1)
Quarter: 2025Q4

REPORT INFORMATION
  Report Type: Spontaneous
  Country: US (occurrence: None)
  Receive Date: 20251006
  Receipt Date: 20251006
  Transmission Date: 20260117
  Serious: No
  Sender: FDA-CTU
  Company Number: None

PATIENT
  Age: 74 Year
  Sex: Female
  Weight: 60.75 kg

DRUGS (13)
  1. KETOROLAC [Suspect]
     Active Substance: KETOROLAC TROMETHAMINE
     Indication: Cataract operation
     Dosage: OTHER QUANTITY : 1 DROP(S)?FREQUENCY : 3 TIMES A DAY?
     Route: 047
  2. D [Concomitant]
  3. CRANBERRY CONCENTRATE [Concomitant]
     Active Substance: CRANBERRY CONCENTRATE
  4. COENZYME Q10 [Concomitant]
     Active Substance: DIETARY SUPPLEMENT\UBIDECARENONE
  5. ZINC [Concomitant]
     Active Substance: ZINC
  6. BIOTIN [Concomitant]
     Active Substance: BIOTIN
  7. leutene Plus [Concomitant]
  8. OMEGA 3 [Concomitant]
     Active Substance: CAPSAICIN
  9. DIETARY SUPPLEMENT [Concomitant]
     Active Substance: DIETARY SUPPLEMENT
  10. HA joint formula [Concomitant]
  11. altaeCal [Concomitant]
  12. STRONTIUM MONOCITRATE [Concomitant]
     Active Substance: STRONTIUM MONOCITRATE
  13. EMERGEN-C [Concomitant]
     Active Substance: VITAMINS

REACTIONS (2)
  - Burning sensation [None]
  - Pruritus [None]

NARRATIVE: CASE EVENT DATE: 20251001
